FAERS Safety Report 12608965 (Version 1)
Quarter: 2016Q3

REPORT INFORMATION
  Report Type: Spontaneous
  Country: TR (occurrence: TR)
  Receive Date: 20160731
  Receipt Date: 20160731
  Transmission Date: 20161109
  Serious: Yes (Other)
  Sender: FDA-Public Use
  Company Number: TR-ALEMBIC PHARMACUETICALS LIMITED-2015SCAL000942

PATIENT

DRUGS (1)
  1. VENLAFAXINE HYDROCHLORIDE. [Suspect]
     Active Substance: VENLAFAXINE HYDROCHLORIDE
     Indication: DEPRESSION
     Dosage: 150 MG, QD
     Route: 048

REACTIONS (1)
  - Liver injury [Recovered/Resolved]
